FAERS Safety Report 7122418-9 (Version None)
Quarter: 2010Q4

REPORT INFORMATION
  Report Type: 
  Country: None (occurrence: None)
  Receive Date: 20101124
  Receipt Date: 20100714
  Transmission Date: 20110411
  Serious: Yes (Hospitalization)
  Sender: FDA-Public Use
  Company Number: PHHY2009US36413

PATIENT
  Sex: Female

DRUGS (5)
  1. ERL 080A ERL+TAB [Suspect]
     Indication: RENAL TRANSPLANT
     Dosage: 1440 MG/DAY
     Route: 048
     Dates: start: 20071002
  2. ERL 080A ERL+TAB [Suspect]
     Indication: IMMUNOSUPPRESSION
  3. PROGRAF [Concomitant]
     Indication: RENAL TRANSPLANT
     Dosage: 10 MG
     Dates: start: 20071001
  4. PROGRAF [Concomitant]
     Indication: IMMUNOSUPPRESSION
  5. PREDNISONE [Concomitant]
     Indication: IMMUNOSUPPRESSION
     Dosage: 5 MG/DAY
     Dates: start: 20070928

REACTIONS (9)
  - ABDOMINAL PAIN [None]
  - DIARRHOEA [None]
  - DYSURIA [None]
  - ESCHERICHIA INFECTION [None]
  - NAUSEA [None]
  - POLLAKIURIA [None]
  - PYELONEPHRITIS [None]
  - URINARY TRACT INFECTION [None]
  - VOMITING [None]
